FAERS Safety Report 8790456 (Version 1)
Quarter: 2012Q4

REPORT INFORMATION
  Report Type: 
  Country: US (occurrence: None)
  Receive Date: 20120911
  Receipt Date: 20120911
  Transmission Date: 20130627
  Serious: Yes (Hospitalization)
  Sender: FDA-Public Use
  Company Number: None

PATIENT
  Sex: Male
  Weight: 113.9 kg

DRUGS (1)
  1. CETUXIMAB [Suspect]
     Dosage: (8/14, 8/21, 8/28/12)

REACTIONS (4)
  - Tremor [None]
  - Loss of consciousness [None]
  - Incontinence [None]
  - Memory impairment [None]
